FAERS Safety Report 20455621 (Version 1)
Quarter: 2022Q1

REPORT INFORMATION
  Report Type: Spontaneous
  Country: US (occurrence: None)
  Receive Date: 20220210
  Receipt Date: 20220210
  Transmission Date: 20220423
  Serious: Yes (Hospitalization)
  Sender: FDA-Public Use
  Company Number: None

PATIENT
  Age: 83 Year
  Sex: Male
  Weight: 92 kg

DRUGS (2)
  1. OLUMIANT [Suspect]
     Active Substance: BARICITINIB
     Indication: COVID-19
     Dosage: FREQUENCY : DAILY;?
     Route: 048
     Dates: start: 20220121, end: 20220126
  2. DEXAMETHASONE SODIUM PHOSPHATE [Suspect]
     Active Substance: DEXAMETHASONE SODIUM PHOSPHATE
     Dosage: FREQUENCY : DAILY;?
     Route: 042
     Dates: start: 20220118, end: 20220126

REACTIONS (10)
  - Acute respiratory failure [None]
  - Pneumonia bacterial [None]
  - Syncope [None]
  - Unresponsive to stimuli [None]
  - Haemodynamic instability [None]
  - Upper gastrointestinal haemorrhage [None]
  - Oesophageal pain [None]
  - Gastrointestinal perforation [None]
  - Hypotension [None]
  - Blood loss anaemia [None]

NARRATIVE: CASE EVENT DATE: 20220126
